FAERS Safety Report 6321581-7 (Version None)
Quarter: 2009Q3

REPORT INFORMATION
  Report Type: 
  Country: None (occurrence: None)
  Receive Date: 20090824
  Receipt Date: 20090812
  Transmission Date: 20100115
  Serious: Yes (Other)
  Sender: FDA-Public Use
  Company Number: GB-JNJFOC-20090804407

PATIENT
  Sex: Male

DRUGS (3)
  1. REMICADE [Suspect]
     Indication: DRUG USE FOR UNKNOWN INDICATION
     Dosage: 4 DOSES ADMINISTERED
     Route: 042
  2. ANTI-EPILEPTIC [Concomitant]
     Indication: EPILEPSY
  3. IMMUNOSUPPRESSANT [Concomitant]

REACTIONS (3)
  - HYPOAESTHESIA [None]
  - PARAESTHESIA [None]
  - SENSORY LOSS [None]
